FAERS Safety Report 7081055-5 (Version None)
Quarter: 2010Q4

REPORT INFORMATION
  Report Type: 
  Country: None (occurrence: None)
  Receive Date: 20101103
  Receipt Date: 20040916
  Transmission Date: 20110411
  Serious: Yes (Other)
  Sender: FDA-Public Use
  Company Number: NL-ROCHE-733757

PATIENT

DRUGS (1)
  1. HERCEPTIN [Suspect]
     Route: 042

REACTIONS (1)
  - DISEASE PROGRESSION [None]
